FAERS Safety Report 8688190 (Version 3)
Quarter: 2012Q4

REPORT INFORMATION
  Report Type: 
  Country: JP (occurrence: JP)
  Receive Date: 20120727
  Receipt Date: 20121127
  Transmission Date: 20130627
  Serious: Yes (Life-Threatening, Hospitalization, Other)
  Sender: FDA-Public Use
  Company Number: JP-SHIRE-ALL1-2011-02141

PATIENT
  Age: 69 Year
  Sex: Male

DRUGS (32)
  1. FOSRENOL [Suspect]
     Indication: HYPERPHOSPHATAEMIA
     Dosage: 750 mg (immediately after meals), 1x/day:qd
     Route: 048
     Dates: start: 20090530, end: 20090531
  2. FOSRENOL [Suspect]
     Dosage: 250 mg, 1x/day:qd
     Route: 048
     Dates: start: 20090601, end: 20090612
  3. FOSRENOL [Suspect]
     Dosage: 750 mg, Unknown
     Route: 048
     Dates: start: 20090613, end: 20090626
  4. FOSRENOL [Suspect]
     Dosage: 1500 mg, Unknown
     Route: 048
     Dates: start: 20090627, end: 20090702
  5. FOSRENOL [Suspect]
     Dosage: 750 mg, Unknown
     Route: 048
     Dates: start: 20090703
  6. FOSRENOL [Suspect]
     Dosage: 1500 mg, Unknown
     Route: 048
     Dates: start: 20090822, end: 20090826
  7. FOSRENOL [Suspect]
     Dosage: 750 mg, Unknown
     Route: 048
     Dates: start: 20090827, end: 20091016
  8. FOSRENOL [Suspect]
     Dosage: 1500 mg, Unknown
     Route: 048
     Dates: start: 20091017, end: 20100429
  9. FOSRENOL [Suspect]
     Dosage: 2250 mg, Unknown
     Route: 048
     Dates: start: 20100430
  10. OXAROL [Concomitant]
     Indication: PRODUCT USED FOR UNKNOWN INDICATION
     Dosage: 15 ?g, Unknown
     Route: 042
     Dates: start: 20090401, end: 20090731
  11. OXAROL [Concomitant]
     Dosage: 20 ?g, Unknown
     Route: 042
     Dates: start: 20090801, end: 20090915
  12. OXAROL [Concomitant]
     Dosage: 10 ?g, Unknown
     Route: 042
     Dates: start: 20090916, end: 20091031
  13. OXAROL [Concomitant]
     Dosage: 15 ?g, Unknown
     Route: 042
     Dates: start: 20100216, end: 20100430
  14. OXAROL [Concomitant]
     Dosage: 30 ?g, Unknown
     Route: 042
     Dates: start: 20100501, end: 20101130
  15. OXAROL [Concomitant]
     Dosage: 20 ?g, Unknown
     Route: 042
     Dates: start: 20101201, end: 20110131
  16. OXAROL [Concomitant]
     Dosage: 10 ?g, Unknown
     Route: 042
     Dates: start: 20110201, end: 20110228
  17. OXAROL [Concomitant]
     Dosage: 5 ?g, Unknown
     Route: 042
     Dates: start: 20110301, end: 20110531
  18. OXAROL [Concomitant]
     Dosage: 10 ?g, Unknown
     Route: 042
     Dates: start: 20110601
  19. RENAGEL                            /01459901/ [Concomitant]
     Indication: HYPERPHOSPHATAEMIA
     Dosage: 1500 mg, Unknown
     Route: 048
     Dates: end: 20090612
  20. REGPARA [Concomitant]
     Indication: HYPERPARATHYROIDISM SECONDARY
     Dosage: 25 mg, Unknown
     Route: 048
     Dates: end: 20100917
  21. REGPARA [Concomitant]
     Dosage: 50 mg, Unknown
     Route: 048
     Dates: start: 20100918
  22. LAC B [Concomitant]
     Indication: PRODUCT USED FOR UNKNOWN INDICATION
     Dosage: 3 g, Unknown
     Route: 048
  23. SELBEX [Concomitant]
     Indication: PRODUCT USED FOR UNKNOWN INDICATION
     Dosage: 1.5 g, Unknown
     Route: 048
  24. BAYASPIRIN [Concomitant]
     Indication: HYPERPARATHYROIDISM SECONDARY
     Dosage: 100 mg, Unknown
     Route: 048
  25. OMEPRAL /00661201/ [Concomitant]
     Indication: PRODUCT USED FOR UNKNOWN INDICATION
     Dosage: 10 mg, Unknown
     Route: 048
     Dates: end: 20101220
  26. EURODIN                            /00425901/ [Concomitant]
     Indication: PRODUCT USED FOR UNKNOWN INDICATION
     Dosage: 2 mg, Unknown
     Route: 048
  27. ZESULAN [Concomitant]
     Indication: PRODUCT USED FOR UNKNOWN INDICATION
     Dosage: 1 DF, Unknown
     Route: 047
  28. ARTIST [Concomitant]
     Indication: PRODUCT USED FOR UNKNOWN INDICATION
     Dosage: 5 mg, Unknown
     Route: 048
  29. NITOROL [Concomitant]
     Indication: PRODUCT USED FOR UNKNOWN INDICATION
     Dosage: 40 mg, Unknown
     Route: 041
  30. CORINAEL [Concomitant]
     Indication: PRODUCT USED FOR UNKNOWN INDICATION
     Dosage: 60 mg, Unknown
     Route: 048
  31. RHUBARB [Concomitant]
     Indication: PRODUCT USED FOR UNKNOWN INDICATION
     Dosage: 3 g, Unknown
     Route: 048
  32. HEPARIN [Concomitant]
     Indication: HAEMORRHAGE PROPHYLAXIS
     Dosage: UNK UNK, Other  (1A / 3weeks)
     Route: 042

REACTIONS (14)
  - Angina unstable [Recovering/Resolving]
  - Cardiac failure congestive [Recovering/Resolving]
  - Procedural hypotension [Recovering/Resolving]
  - Atrial fibrillation [Recovering/Resolving]
  - Cardiac failure [Recovering/Resolving]
  - Dizziness [Recovering/Resolving]
  - Meniere^s disease [Recovering/Resolving]
  - Peripheral arterial occlusive disease [Unknown]
  - Lumbar spinal stenosis [Recovering/Resolving]
  - Herpes zoster [Recovering/Resolving]
  - Gynaecomastia [Not Recovered/Not Resolved]
  - Bronchitis [Recovering/Resolving]
  - Constipation [Recovering/Resolving]
  - Diarrhoea [Recovering/Resolving]
